FAERS Safety Report 6046114-4 (Version None)
Quarter: 2009Q1

REPORT INFORMATION
  Report Type: 
  Country: None (occurrence: None)
  Receive Date: 20090122
  Receipt Date: 20090114
  Transmission Date: 20090719
  Serious: Yes (Life-Threatening)
  Sender: FDA-Public Use
  Company Number: FR-BAXTER-2009BH000806

PATIENT
  Age: 58 Year
  Sex: Female

DRUGS (4)
  1. HOLOXAN BAXTER [Suspect]
     Indication: BRONCHIAL CARCINOMA
     Route: 042
     Dates: start: 20081216, end: 20081218
  2. UROMITEXAN BAXTER [Suspect]
     Indication: DRUG USE FOR UNKNOWN INDICATION
     Route: 042
  3. CISPLATIN [Suspect]
     Indication: BRONCHIAL CARCINOMA
     Route: 042
     Dates: start: 20081216, end: 20081217
  4. ETOPOSIDE [Suspect]
     Indication: BRONCHIAL CARCINOMA
     Route: 042
     Dates: start: 20081216, end: 20081218

REACTIONS (5)
  - COMA [None]
  - CONVULSION [None]
  - HYPONATRAEMIA [None]
  - INAPPROPRIATE ANTIDIURETIC HORMONE SECRETION [None]
  - LACTIC ACIDOSIS [None]
